FAERS Safety Report 8115619-4 (Version None)
Quarter: 2012Q1

REPORT INFORMATION
  Report Type: 
  Country: None (occurrence: None)
  Receive Date: 20120206
  Receipt Date: 20120125
  Transmission Date: 20120608
  Serious: Yes (Death, Life-Threatening, Hospitalization)
  Sender: FDA-Public Use
  Company Number: GB-TEVA-319961ISR

PATIENT
  Sex: Male
  Weight: 102 kg

DRUGS (4)
  1. WARFARIN SODIUM [Suspect]
     Indication: PULMONARY EMBOLISM
     Dosage: 10 MILLIGRAM;
     Route: 048
     Dates: start: 20060918, end: 20060920
  2. VERUM [Suspect]
     Indication: PULMONARY EMBOLISM
     Dosage: 35000 IU (INTERNATIONAL UNIT);
     Route: 058
     Dates: start: 20060918, end: 20060920
  3. ACETAMINOPHEN [Concomitant]
     Indication: HEADACHE
  4. AMOXICILLIN [Concomitant]
     Indication: LOWER RESPIRATORY TRACT INFECTION
     Route: 048
     Dates: start: 20060918, end: 20060920

REACTIONS (5)
  - CARDIAC ARREST [None]
  - DYSPNOEA EXERTIONAL [None]
  - PULMONARY EMBOLISM [None]
  - UNEVALUABLE EVENT [None]
  - LACERATION [None]
